FAERS Safety Report 16466567 (Version 1)
Quarter: 2019Q2

REPORT INFORMATION
  Report Type: Spontaneous
  Country: MY (occurrence: MY)
  Receive Date: 20190623
  Receipt Date: 20190623
  Transmission Date: 20190711
  Serious: Yes (Other)
  Sender: FDA-Public Use
  Company Number: PHHY2019MY141759

PATIENT
  Age: 15 Year
  Sex: Female

DRUGS (1)
  1. SANDIMMUN [Suspect]
     Active Substance: CYCLOSPORINE
     Indication: PROPHYLAXIS AGAINST TRANSPLANT REJECTION
     Dosage: 75 MG, Q12H
     Route: 065

REACTIONS (3)
  - Vision blurred [Recovering/Resolving]
  - Headache [Recovering/Resolving]
  - Generalised tonic-clonic seizure [Recovering/Resolving]
